FAERS Safety Report 7783616-4 (Version None)
Quarter: 2011Q3

REPORT INFORMATION
  Report Type: 
  Country: None (occurrence: None)
  Receive Date: 20110928
  Receipt Date: 20101108
  Transmission Date: 20111222
  Serious: No
  Sender: FDA-Public Use
  Company Number: US-MYLANLABS-2010S1017876

PATIENT
  Age: 83 Year
  Sex: Female

DRUGS (4)
  1. NITRGLYCERIN TRANSDERMAL SYSTEM [Suspect]
     Indication: ATRIAL FIBRILLATION
     Dosage: CHANGED Q12H
     Route: 062
     Dates: start: 20090101
  2. METOPROLOL TARTRATE [Concomitant]
  3. NITRGLYCERIN TRANSDERMAL SYSTEM [Suspect]
     Indication: CHEST PAIN
     Dosage: CHANGED Q12H
     Route: 062
     Dates: start: 20090101
  4. CARDIZEM [Concomitant]

REACTIONS (4)
  - APPLICATION SITE PAIN [None]
  - APPLICATION SITE IRRITATION [None]
  - APPLICATION SITE ERYTHEMA [None]
  - APPLICATION SITE URTICARIA [None]
